FAERS Safety Report 9449712 (Version 2)
Quarter: 2013Q3

REPORT INFORMATION
  Report Type: Spontaneous
  Country: FR (occurrence: FR)
  Receive Date: 20130809
  Receipt Date: 20130930
  Transmission Date: 20140515
  Serious: Yes (Other)
  Sender: FDA-Public Use
  Company Number: FR-AMGEN-FRASP2013055900

PATIENT
  Age: 67 Year
  Sex: Female
  Weight: 67 kg

DRUGS (4)
  1. XGEVA [Suspect]
     Indication: METASTASES TO BONE
     Dosage: 120 MG, UNK
     Route: 058
     Dates: start: 201303
  2. XGEVA [Suspect]
     Indication: BREAST CANCER
  3. CAPECITABINE [Concomitant]
     Dosage: 7X500 MG, 14 DAYS/21
     Route: 048
     Dates: start: 201303, end: 201306
  4. PARACETAMOL [Concomitant]

REACTIONS (3)
  - Rib fracture [Recovered/Resolved]
  - Chest pain [Unknown]
  - Fall [Unknown]
